FAERS Safety Report 15564461 (Version 1)
Quarter: 2018Q4

REPORT INFORMATION
  Report Type: Spontaneous
  Country: US (occurrence: US)
  Receive Date: 20181030
  Receipt Date: 20181030
  Transmission Date: 20190205
  Serious: No
  Sender: FDA-Public Use
  Company Number: US-ASTRAZENECA-2018SF28668

PATIENT
  Age: 43 Year
  Sex: Female
  Weight: 100.7 kg

DRUGS (3)
  1. FASENRA [Suspect]
     Active Substance: BENRALIZUMAB
     Route: 058
     Dates: start: 20180706
  2. EPINEPHRINE. [Concomitant]
     Active Substance: EPINEPHRINE
  3. XOPENEX [Concomitant]
     Active Substance: LEVALBUTEROL HYDROCHLORIDE

REACTIONS (4)
  - Injection site erythema [Unknown]
  - Pruritus [Unknown]
  - Chest discomfort [Unknown]
  - Wheezing [Unknown]
